FAERS Safety Report 7689710-0 (Version None)
Quarter: 2011Q3

REPORT INFORMATION
  Report Type: 
  Country: None (occurrence: None)
  Receive Date: 20110817
  Receipt Date: 20110808
  Transmission Date: 20111222
  Serious: Yes (Hospitalization, Other)
  Sender: FDA-Public Use
  Company Number: US-ASTRAZENECA-2011SE44576

PATIENT
  Age: 51 Year
  Sex: Female

DRUGS (3)
  1. PLAVIX [Concomitant]
  2. NEXIUM [Suspect]
     Indication: GASTRIC ULCER
     Route: 048
  3. PRILOSEC OTC [Suspect]
     Route: 048

REACTIONS (6)
  - CHEST PAIN [None]
  - GASTRITIS EROSIVE [None]
  - EMBOLISM [None]
  - STENT PLACEMENT [None]
  - GASTRIC ULCER HAEMORRHAGE [None]
  - DRUG INEFFECTIVE [None]
